FAERS Safety Report 6797586-9 (Version None)
Quarter: 2010Q2

REPORT INFORMATION
  Report Type: 
  Country: None (occurrence: None)
  Receive Date: 20100623
  Receipt Date: 20100615
  Transmission Date: 20101027
  Serious: Yes (Other)
  Sender: FDA-Public Use
  Company Number: 013912

PATIENT
  Age: 23 Year
  Sex: Male

DRUGS (3)
  1. ALPRAZOLAM [Suspect]
     Dosage: ORAL
     Route: 048
  2. LORTAB [Suspect]
  3. RISPERIDONE [Suspect]

REACTIONS (4)
  - ATRIOVENTRICULAR BLOCK SECOND DEGREE [None]
  - REFUSAL OF TREATMENT BY PATIENT [None]
  - SELF-MEDICATION [None]
  - SINUS BRADYCARDIA [None]
